FAERS Safety Report 10526290 (Version 1)
Quarter: 2014Q4

REPORT INFORMATION
  Report Type: Spontaneous
  Country: JP (occurrence: JP)
  Receive Date: 20141018
  Receipt Date: 20141018
  Transmission Date: 20150528
  Serious: Yes (Other)
  Sender: FDA-Public Use
  Company Number: JP-009507513-1410JPN005768

PATIENT
  Sex: Female
  Weight: 1.78 kg

DRUGS (7)
  1. DEXTROSE (+) MAGNESIUM SULFATE [Concomitant]
     Indication: UTERINE CONTRACTIONS DURING PREGNANCY
     Dosage: DAILY DOSE UNKNOWN,CONTINUOUS INFUSION
     Route: 064
     Dates: start: 20131126, end: 20131224
  2. DEXTROSE (+) MAGNESIUM SULFATE [Concomitant]
     Indication: THREATENED LABOUR
  3. UTEMERIN [Concomitant]
     Active Substance: RITODRINE
     Indication: THREATENED LABOUR
  4. RINDERON (BETAMETHASONE SODIUM PHOSPHATE) [Concomitant]
     Dosage: 12 MG, BID
     Route: 064
  5. ESLAX [Suspect]
     Active Substance: ROCURONIUM BROMIDE
     Indication: NEUROMUSCULAR BLOCKING THERAPY
     Dosage: 50 MG, QD
     Route: 064
     Dates: start: 20131224, end: 20131224
  6. UTEMERIN [Concomitant]
     Active Substance: RITODRINE
     Indication: UTERINE CONTRACTIONS DURING PREGNANCY
     Dosage: DAILY DOSAGE UNKNOWN , CONTINUOUS INFUSION
     Route: 064
     Dates: start: 20131220, end: 20131224
  7. RAVONAL [Concomitant]
     Active Substance: THIOPENTAL
     Indication: INDUCTION OF ANAESTHESIA
     Dosage: 3 MG/KG, QD, DIVIDED DOSE FREQUENCY UNKNOWN
     Route: 064

REACTIONS (2)
  - Low birth weight baby [Unknown]
  - Premature baby [Unknown]

NARRATIVE: CASE EVENT DATE: 20131224
